FAERS Safety Report 11092161 (Version 1)
Quarter: 2015Q2

REPORT INFORMATION
  Report Type: Spontaneous
  Country: US (occurrence: US)
  Receive Date: 20150505
  Receipt Date: 20150505
  Transmission Date: 20150821
  Serious: No
  Sender: FDA-Public Use
  Company Number: US-009507513-1505USA000858

PATIENT
  Sex: Female

DRUGS (2)
  1. TEGRETOL [Concomitant]
     Active Substance: CARBAMAZEPINE
     Dosage: UNK
  2. BELSOMRA [Suspect]
     Active Substance: SUVOREXANT
     Dosage: STRENGTH: 5 MG; 1 TABLET ONCE DAILY
     Route: 048

REACTIONS (10)
  - Depression [Unknown]
  - Hallucination [Recovered/Resolved]
  - Emotional disorder [Unknown]
  - Hallucination [Unknown]
  - Emotional disorder [Recovered/Resolved]
  - Depression [Recovered/Resolved]
  - Agitation [Unknown]
  - Agitation [Recovered/Resolved]
  - Confusional state [Recovered/Resolved]
  - Confusional state [Unknown]
